FAERS Safety Report 23223091 (Version 1)
Quarter: 2023Q4

REPORT INFORMATION
  Report Type: Report from Study
  Country: AR (occurrence: AR)
  Receive Date: 20231123
  Receipt Date: 20231123
  Transmission Date: 20240109
  Serious: Yes (Other)
  Sender: FDA-Public Use
  Company Number: AR-002147023-NVSC2022AR295429

PATIENT
  Age: 56 Year
  Sex: Male

DRUGS (10)
  1. COSENTYX [Suspect]
     Active Substance: SECUKINUMAB
     Indication: Psoriatic arthropathy
     Dosage: UNK
     Route: 065
     Dates: start: 202210
  2. COSENTYX [Suspect]
     Active Substance: SECUKINUMAB
     Dosage: 150 MG, QMO
     Route: 058
     Dates: start: 20221122
  3. COSENTYX [Suspect]
     Active Substance: SECUKINUMAB
     Dosage: 300 MG, QMO
     Route: 065
     Dates: start: 202211
  4. COSENTYX [Suspect]
     Active Substance: SECUKINUMAB
     Dosage: UNK
     Route: 065
     Dates: start: 202308
  5. VALSARTAN [Concomitant]
     Active Substance: VALSARTAN
     Indication: Hypertension
     Dosage: 160 MG, QD
     Route: 065
  6. FLUXAP [Concomitant]
     Indication: Product used for unknown indication
     Dosage: 20 MG, QD
     Route: 065
  7. SITAGLIPTIN [Concomitant]
     Active Substance: SITAGLIPTIN
     Indication: Type 2 diabetes mellitus
     Dosage: 100 MG, QD
     Route: 065
  8. CORTICAS [Concomitant]
     Indication: Condition aggravated
     Dosage: UNK
     Route: 065
  9. ATARAXONE [Concomitant]
     Indication: Product used for unknown indication
     Dosage: 20 COATED TABLET
     Route: 065
  10. HEXALER CORT [Concomitant]
     Indication: Product used for unknown indication
     Dosage: 10 COATED TABLET
     Route: 065

REACTIONS (12)
  - Psoriatic arthropathy [Unknown]
  - Condition aggravated [Unknown]
  - Pruritus [Recovered/Resolved]
  - Dry skin [Unknown]
  - Nervousness [Unknown]
  - Burning sensation [Unknown]
  - Erythema [Unknown]
  - Blister [Unknown]
  - Sensitive skin [Unknown]
  - Arthropathy [Unknown]
  - Hypersensitivity [Unknown]
  - Rash [Unknown]

NARRATIVE: CASE EVENT DATE: 20221205
